FAERS Safety Report 26005815 (Version 1)
Quarter: 2025Q4

REPORT INFORMATION
  Report Type: Report from Study
  Country: US (occurrence: US)
  Receive Date: 20251106
  Receipt Date: 20251106
  Transmission Date: 20260117
  Serious: Yes (Other)
  Sender: JOHNSON AND JOHNSON
  Company Number: US-JNJFOC-20251144194

PATIENT
  Sex: Female

DRUGS (1)
  1. REMICADE [Suspect]
     Active Substance: INFLIXIMAB
     Indication: Colitis ulcerative
     Route: 041
     Dates: start: 202502

REACTIONS (4)
  - Clostridium difficile infection [Recovered/Resolved]
  - Infusion related reaction [Recovered/Resolved]
  - Tremor [Recovered/Resolved]
  - Drug level increased [Unknown]
